FAERS Safety Report 12775585 (Version 1)
Quarter: 2016Q3

REPORT INFORMATION
  Report Type: Report from Study
  Country: US (occurrence: US)
  Receive Date: 20160923
  Receipt Date: 20160923
  Transmission Date: 20161109
  Serious: Yes (Death)
  Sender: FDA-Public Use
  Company Number: US-PFIZER INC-2016438181

PATIENT
  Sex: Male

DRUGS (6)
  1. BEVACIZUMAB [Suspect]
     Active Substance: BEVACIZUMAB
     Indication: PROSTATE CANCER METASTATIC
     Dosage: 15 MG/KG, CYCLIC: ON DAY 1 OF EACH 21-DAY CYCLE
     Route: 042
  2. PEGFILGRASTIM [Concomitant]
     Active Substance: PEGFILGRASTIM
     Indication: THROMBOSIS PROPHYLAXIS
     Dosage: 6 MG, ON DAY 2
     Route: 058
  3. ENOXAPARIN [Concomitant]
     Active Substance: ENOXAPARIN
     Indication: THROMBOSIS PROPHYLAXIS
     Dosage: 1 MG/KG, DAILY,STARTING ON DAY 1
     Route: 058
  4. DOCETAXEL. [Suspect]
     Active Substance: DOCETAXEL
     Indication: PROSTATE CANCER METASTATIC
     Dosage: 75 MG/M2, CYCLIC: ON DAY 1 OF EACH 21-DAY CYCLE
     Route: 042
  5. LENALIDOMIDE [Suspect]
     Active Substance: LENALIDOMIDE
     Indication: PROSTATE CANCER METASTATIC
     Dosage: UNK,FOR THE FIRST 14 DAYS OF EACH CYCLE
     Route: 048
  6. PREDNISONE. [Suspect]
     Active Substance: PREDNISONE
     Indication: PROSTATE CANCER METASTATIC
     Dosage: 10 MG, DAILY, THROUGHOUT THE CYCLE

REACTIONS (1)
  - Sudden death [Fatal]
